FAERS Safety Report 17235414 (Version 1)
Quarter: 2020Q1

REPORT INFORMATION
  Report Type: Spontaneous
  Country: US (occurrence: US)
  Receive Date: 20200106
  Receipt Date: 20200106
  Transmission Date: 20200409
  Serious: Yes (Other)
  Sender: FDA-Public Use
  Company Number: US-AMGEN-USASP2019217858

PATIENT
  Age: 44 Year
  Sex: Female

DRUGS (2)
  1. RIBOCICLIB. [Concomitant]
     Active Substance: RIBOCICLIB
     Dosage: UNK
  2. FILGRASTIM [Suspect]
     Active Substance: FILGRASTIM
     Indication: NEUTROPENIA
     Dosage: UNK UNK, QD (FOR 3 DAYS)
     Route: 065

REACTIONS (1)
  - Acute myeloid leukaemia [Recovered/Resolved]
